FAERS Safety Report 23075082 (Version 1)
Quarter: 2023Q4

REPORT INFORMATION
  Report Type: Spontaneous
  Country: JP (occurrence: JP)
  Receive Date: 20231017
  Receipt Date: 20231017
  Transmission Date: 20240110
  Serious: Yes (Other)
  Sender: FDA-Public Use
  Company Number: JP-AMGEN-JPNSP2023182812

PATIENT
  Age: 8 Year
  Sex: Male

DRUGS (1)
  1. BLINATUMOMAB [Suspect]
     Active Substance: BLINATUMOMAB
     Indication: Acute lymphocytic leukaemia
     Dosage: UNK
     Route: 065

REACTIONS (4)
  - Graft versus host disease in skin [Recovering/Resolving]
  - Cytokine release syndrome [Unknown]
  - Stomatitis [Unknown]
  - Febrile neutropenia [Unknown]
